FAERS Safety Report 6025375-1 (Version None)
Quarter: 2008Q4

REPORT INFORMATION
  Report Type: 
  Country: None (occurrence: None)
  Receive Date: 20081222
  Receipt Date: 20081001
  Transmission Date: 20090506
  Serious: No
  Sender: FDA-Public Use
  Company Number: ALL1-2008-02838

PATIENT
  Sex: Male

DRUGS (2)
  1. VYVANSE [Suspect]
     Dosage: 30 MG, ORAL ; 50 MG, ORAL
     Route: 048
     Dates: start: 20080801, end: 20080901
  2. VYVANSE [Suspect]
     Dosage: 30 MG, ORAL ; 50 MG, ORAL
     Route: 048
     Dates: start: 20080901

REACTIONS (3)
  - DECREASED APPETITE [None]
  - DRY MOUTH [None]
  - VISION BLURRED [None]
